FAERS Safety Report 4974542-4 (Version None)
Quarter: 2006Q2

REPORT INFORMATION
  Report Type: 
  Country: None (occurrence: None)
  Receive Date: 20060410
  Receipt Date: 20060329
  Transmission Date: 20061013
  Serious: Yes (Death, Other)
  Sender: FDA-Public Use
  Company Number: 2006043791

PATIENT
  Age: 65 Year
  Sex: Male

DRUGS (2)
  1. DOXAZOSIN (DOXAZOSIN) [Suspect]
     Indication: PROSTATITIS
     Dosage: 2 MG (2  MG, QD), ORAL
     Route: 048
  2. CELECOXIB (CELECOXIB) [Suspect]
     Indication: ILL-DEFINED DISORDER
     Dosage: 200 MG (200 MG, QD), ORAL
     Route: 048

REACTIONS (1)
  - CARDIAC DISCOMFORT [None]
